FAERS Safety Report 16663995 (Version 2)
Quarter: 2019Q3

REPORT INFORMATION
  Report Type: Spontaneous
  Country: US (occurrence: US)
  Receive Date: 20190802
  Receipt Date: 20190806
  Transmission Date: 20191004
  Serious: No
  Sender: FDA-Public Use
  Company Number: US-TEVA-2019-US-1085164

PATIENT
  Sex: Male

DRUGS (1)
  1. OXYCODONE W/ACETYLSALICYLIC ACID [Suspect]
     Active Substance: ASPIRIN\OXYCODONE HYDROCHLORIDE
     Indication: PAIN PROPHYLAXIS
     Dosage: 1.5 DOSAGE FORMS DAILY; DOSE STRENGTH:  4.8355/325MG
     Route: 065
     Dates: start: 2004

REACTIONS (1)
  - Wrong technique in product usage process [Unknown]
